FAERS Safety Report 9729711 (Version 3)
Quarter: 2015Q3

REPORT INFORMATION
  Report Type: Spontaneous
  Country: US (occurrence: US)
  Receive Date: 20131204
  Receipt Date: 20150804
  Transmission Date: 20151125
  Serious: Yes (Life-Threatening, Hospitalization)
  Sender: FDA-Public Use
  Company Number: US-GILEAD-2009-0021005

PATIENT
  Age: 57 Year
  Sex: Female

DRUGS (24)
  1. REVATIO [Concomitant]
     Active Substance: SILDENAFIL CITRATE
  2. GLIPIZIDE. [Concomitant]
     Active Substance: GLIPIZIDE
  3. MULTIVITAMIN [Concomitant]
     Active Substance: VITAMINS
  4. LEXAPRO [Concomitant]
     Active Substance: ESCITALOPRAM OXALATE
  5. SUDAPHED [Concomitant]
  6. VITAMIN C [Concomitant]
     Active Substance: ASCORBIC ACID
  7. LETAIRIS [Suspect]
     Active Substance: AMBRISENTAN
     Indication: PULMONARY ARTERIAL HYPERTENSION
     Route: 048
     Dates: start: 20090213, end: 20090301
  8. ACCUPRIL [Concomitant]
     Active Substance: QUINAPRIL HYDROCHLORIDE
  9. PRAVACHOL [Concomitant]
     Active Substance: PRAVASTATIN SODIUM
  10. PROTONIX [Concomitant]
     Active Substance: PANTOPRAZOLE SODIUM
  11. K-TAB [Concomitant]
     Active Substance: POTASSIUM CHLORIDE
  12. OXYIR [Concomitant]
     Active Substance: OXYCODONE HYDROCHLORIDE
  13. CITRACAL [Concomitant]
     Active Substance: CALCIUM CITRATE
  14. LASIX [Concomitant]
     Active Substance: FUROSEMIDE
  15. ASPIRIN. [Concomitant]
     Active Substance: ASPIRIN
  16. METFORMIN [Concomitant]
     Active Substance: METFORMIN HYDROCHLORIDE
  17. SYNTHROID [Concomitant]
     Active Substance: LEVOTHYROXINE SODIUM
  18. GLUCOSAMINE [Concomitant]
     Active Substance: GLUCOSAMINE
  19. ONCE A DAY [Concomitant]
  20. ADVAIR HFA [Concomitant]
     Active Substance: FLUTICASONE PROPIONATE\SALMETEROL XINAFOATE
  21. WELLBUTRIN SR [Concomitant]
     Active Substance: BUPROPION HYDROCHLORIDE
  22. OXYCONTIN [Concomitant]
     Active Substance: OXYCODONE HYDROCHLORIDE
  23. SPIRIVA [Concomitant]
     Active Substance: TIOTROPIUM BROMIDE MONOHYDRATE
  24. REQUIP [Concomitant]
     Active Substance: ROPINIROLE HYDROCHLORIDE

REACTIONS (3)
  - Weight increased [Recovering/Resolving]
  - Constipation [Unknown]
  - Dyspnoea [Unknown]
